FAERS Safety Report 9160355 (Version 1)
Quarter: 2013Q1

REPORT INFORMATION
  Report Type: Spontaneous
  Country: BE (occurrence: BE)
  Receive Date: 20130313
  Receipt Date: 20130313
  Transmission Date: 20140127
  Serious: Yes (Death, Hospitalization, Other)
  Sender: FDA-Public Use
  Company Number: BE-JNJFOC-20130302108

PATIENT
  Age: 86 None
  Sex: Male

DRUGS (3)
  1. XARELTO [Suspect]
     Indication: ATRIAL FIBRILLATION
     Route: 048
     Dates: start: 20120918, end: 20130218
  2. XARELTO [Suspect]
     Indication: CEREBROVASCULAR ACCIDENT PROPHYLAXIS
     Route: 048
     Dates: start: 20120918, end: 20130218
  3. ASAFLOW [Concomitant]
     Dosage: 80 (UNITS UNSPECIFIED)
     Route: 065

REACTIONS (5)
  - Thrombotic stroke [Fatal]
  - Anaemia [Unknown]
  - Hemiplegia [Unknown]
  - Gastrointestinal haemorrhage [Unknown]
  - Aphasia [Unknown]
